FAERS Safety Report 7488153-2 (Version None)
Quarter: 2011Q2

REPORT INFORMATION
  Report Type: 
  Country: None (occurrence: None)
  Receive Date: 20110518
  Receipt Date: 20110516
  Transmission Date: 20111010
  Serious: Yes (Other)
  Sender: FDA-Public Use
  Company Number: DE-ROCHE-771459

PATIENT
  Sex: Female
  Weight: 99 kg

DRUGS (9)
  1. THEOPHYLLINE [Concomitant]
     Route: 048
  2. VENTOLAIR [Concomitant]
  3. LANSOPRAZOL [Concomitant]
     Route: 048
  4. IRBESARTAN + HYDROCHLOROTHIAZIDE [Concomitant]
     Indication: HYPERTENSION
     Route: 048
  5. PRAMIPEXOLE DIHYCHLLORIDE [Concomitant]
     Dosage: 1-1-2
     Route: 048
  6. METHYLPREDNISOLONE ACETATE [Concomitant]
     Indication: RHEUMATOID ARTHRITIS
     Dates: start: 19990101
  7. SINGULAIR [Concomitant]
     Route: 048
  8. FORMATRIS [Concomitant]
  9. ACTEMRA [Suspect]
     Indication: RHEUMATOID ARTHRITIS
     Route: 042
     Dates: start: 20110304, end: 20110304

REACTIONS (2)
  - BRONCHOPNEUMONIA [None]
  - ASTHMA [None]
